FAERS Safety Report 23044075 (Version 2)
Quarter: 2023Q4

REPORT INFORMATION
  Report Type: Other
  Country: KR (occurrence: KR)
  Receive Date: 20231009
  Receipt Date: 20231023
  Transmission Date: 20240109
  Serious: Yes (Other)
  Sender: FDA-Public Use
  Company Number: KR-002147023-NVSC2023KR209944

PATIENT

DRUGS (4)
  1. LUCENTIS [Suspect]
     Active Substance: RANIBIZUMAB
     Indication: Retinopathy of prematurity
     Dosage: UNK, INJECTED AT A DOSE OF 0.2 MG/0.02ML
     Route: 050
     Dates: start: 2021
  2. LUCENTIS [Suspect]
     Active Substance: RANIBIZUMAB
     Dosage: UNK (ADDITIONAL INJECTION AFTER 4 WEEKS)
     Route: 050
  3. PARACAINE [Concomitant]
     Active Substance: PROPARACAINE HYDROCHLORIDE
     Indication: Local anaesthesia
     Dosage: UNK
     Route: 065
  4. LEVOFLOXACIN [Concomitant]
     Active Substance: LEVOFLOXACIN
     Indication: Antibiotic therapy
     Dosage: UNK, QID

REACTIONS (4)
  - Retinopathy of prematurity [Unknown]
  - Disease progression [Unknown]
  - Retinal detachment [Unknown]
  - Treatment failure [Unknown]
